FAERS Safety Report 10398299 (Version 1)
Quarter: 2014Q3

REPORT INFORMATION
  Report Type: Spontaneous
  Country: US (occurrence: US)
  Receive Date: 20140821
  Receipt Date: 20140821
  Transmission Date: 20150326
  Serious: Yes (Other)
  Sender: FDA-Public Use
  Company Number: US-JNJFOC-20140810243

PATIENT
  Sex: Male

DRUGS (2)
  1. INVEGA [Suspect]
     Active Substance: PALIPERIDONE
     Indication: PRODUCT USED FOR UNKNOWN INDICATION
     Route: 048
  2. RISPERDAL [Suspect]
     Active Substance: RISPERIDONE
     Indication: PRODUCT USED FOR UNKNOWN INDICATION
     Route: 065

REACTIONS (25)
  - Intervertebral disc degeneration [Unknown]
  - Glaucoma [Unknown]
  - Sinusitis [Unknown]
  - Weight increased [Unknown]
  - Migraine [Unknown]
  - Sleep apnoea syndrome [Unknown]
  - Hypoaesthesia [Unknown]
  - Vomiting [Unknown]
  - Muscle spasms [Unknown]
  - Myocardial infarction [Unknown]
  - Abdominal pain [Unknown]
  - Foreign body [Unknown]
  - Neuralgia [Unknown]
  - Gynaecomastia [Unknown]
  - Myalgia [Unknown]
  - Erectile dysfunction [Unknown]
  - Nausea [Unknown]
  - Multiple sclerosis [Unknown]
  - Bone disorder [Unknown]
  - Palpitations [Unknown]
  - Neck deformity [Unknown]
  - Tendonitis [Unknown]
  - Paraesthesia [Unknown]
  - Weight decreased [Unknown]
  - Back disorder [Unknown]
